FAERS Safety Report 8221141-7 (Version None)
Quarter: 2012Q1

REPORT INFORMATION
  Report Type: 
  Country: None (occurrence: None)
  Receive Date: 20120316
  Receipt Date: 20120309
  Transmission Date: 20120608
  Serious: Yes (Death)
  Sender: FDA-Public Use
  Company Number: SP05600

PATIENT
  Age: 60 Year
  Sex: Male

DRUGS (5)
  1. XIFAXAN [Suspect]
     Indication: HEPATIC ENCEPHALOPATHY
     Dosage: (550 MG), ORAL
     Route: 048
     Dates: start: 20110919
  2. ALDACTONE [Concomitant]
  3. LACTULOSE [Concomitant]
  4. FUROSEMIDE [Concomitant]
  5. NADOLOL [Concomitant]

REACTIONS (2)
  - HEPATIC FAILURE [None]
  - PLATELET COUNT DECREASED [None]
